FAERS Safety Report 14804300 (Version 2)
Quarter: 2018Q2

REPORT INFORMATION
  Report Type: Spontaneous
  Country: US (occurrence: US)
  Receive Date: 20180425
  Receipt Date: 20180502
  Transmission Date: 20180711
  Serious: No
  Sender: FDA-Public Use
  Company Number: US-TEVA-2018-US-871603

PATIENT
  Age: 27 Year
  Sex: Male
  Weight: 86 kg

DRUGS (2)
  1. NUVIGIL [Suspect]
     Active Substance: ARMODAFINIL
     Indication: SHIFT WORK DISORDER
     Dosage: 150 MILLIGRAM DAILY;
     Route: 065
     Dates: start: 20180312
  2. CLONAZEPAM. [Concomitant]
     Active Substance: CLONAZEPAM
     Indication: INSOMNIA

REACTIONS (5)
  - Fatigue [Recovered/Resolved]
  - Wrong technique in product usage process [Unknown]
  - Drug effect incomplete [Unknown]
  - Insomnia [Not Recovered/Not Resolved]
  - Incorrect dose administered [Unknown]

NARRATIVE: CASE EVENT DATE: 201803
